FAERS Safety Report 21910156 (Version 1)
Quarter: 2023Q1

REPORT INFORMATION
  Report Type: Spontaneous
  Country: US (occurrence: US)
  Receive Date: 20230125
  Receipt Date: 20230125
  Transmission Date: 20230418
  Serious: No
  Sender: FDA-Public Use
  Company Number: US-ALLERGAN-2202583US

PATIENT
  Age: 56 Year
  Sex: Female

DRUGS (2)
  1. BOTOX [Suspect]
     Active Substance: ONABOTULINUMTOXINA
     Indication: Product used for unknown indication
     Dosage: UNK, SINGLE
     Dates: start: 20211230, end: 20211230
  2. TRIAZ [Concomitant]
     Active Substance: BENZOYL PEROXIDE
     Indication: Hormone therapy

REACTIONS (5)
  - Thyroid pain [Unknown]
  - Respiratory tract congestion [Not Recovered/Not Resolved]
  - Pain [Recovered/Resolved]
  - Oropharyngeal pain [Recovered/Resolved]
  - Paraesthesia [Recovered/Resolved]
